FAERS Safety Report 24020631 (Version 1)
Quarter: 2024Q2

REPORT INFORMATION
  Report Type: Spontaneous
  Country: US (occurrence: US)
  Receive Date: 20240627
  Receipt Date: 20240627
  Transmission Date: 20240716
  Serious: Yes (Hospitalization)
  Sender: FDA-Public Use
  Company Number: US-MYLANLABS-2024M1056684

PATIENT
  Sex: Male

DRUGS (1)
  1. IFOSFAMIDE [Suspect]
     Active Substance: IFOSFAMIDE
     Indication: Synovial sarcoma
     Dosage: UNK, CYCLE
     Route: 065

REACTIONS (9)
  - Hypernatraemia [Recovering/Resolving]
  - Acute kidney injury [Unknown]
  - Fanconi syndrome acquired [Unknown]
  - Hypophosphataemia [Unknown]
  - Hypokalaemia [Unknown]
  - Renal glycosuria [Unknown]
  - Acquired aminoaciduria [Unknown]
  - Nephrogenic diabetes insipidus [Unknown]
  - Polyuria [Recovering/Resolving]
